FAERS Safety Report 19084835 (Version 2)
Quarter: 2021Q2

REPORT INFORMATION
  Report Type: Report from Study
  Country: US (occurrence: US)
  Receive Date: 20210401
  Receipt Date: 20210421
  Transmission Date: 20210717
  Serious: Yes (Death, Hospitalization, Other)
  Sender: FDA-Public Use
  Company Number: US-GILEAD-2021-0523672

PATIENT
  Age: 49 Year
  Sex: Male

DRUGS (3)
  1. ALYQ [Concomitant]
     Active Substance: TADALAFIL
     Dosage: 40 MG, QD
  2. ALYQ [Concomitant]
     Active Substance: TADALAFIL
  3. AMBRISENTAN [Suspect]
     Active Substance: AMBRISENTAN
     Indication: PULMONARY HYPERTENSION
     Dosage: 10 MG, QD
     Route: 065
     Dates: start: 20160712

REACTIONS (4)
  - Gallbladder disorder [Unknown]
  - Renal disorder [Unknown]
  - Death [Fatal]
  - Sepsis [Unknown]
